FAERS Safety Report 8996688 (Version 3)
Quarter: 2013Q1

REPORT INFORMATION
  Report Type: Spontaneous
  Country: IT (occurrence: IT)
  Receive Date: 20130104
  Receipt Date: 20130320
  Transmission Date: 20140127
  Serious: Yes (Other)
  Sender: FDA-Public Use
  Company Number: IT-BRISTOL-MYERS SQUIBB COMPANY-17254186

PATIENT
  Age: 57 Year
  Sex: Female
  Weight: 53 kg

DRUGS (7)
  1. ERBITUX SOLN FOR INF 5MG/ML [Suspect]
     Route: 042
     Dates: start: 20121218, end: 20121219
  2. IRINOTECAN HCL [Suspect]
     Indication: COLON CANCER
     Route: 042
     Dates: start: 20121218, end: 20121219
  3. 5-FLUOROURACIL [Suspect]
     Dosage: ALSO RECEIVED 536.4 MG
     Route: 042
     Dates: start: 20121218, end: 20121219
  4. CALCIUM LEVOFOLINATE [Concomitant]
     Route: 042
     Dates: start: 20121218, end: 20121219
  5. ONDANSETRON [Concomitant]
     Indication: PROPHYLAXIS OF NAUSEA AND VOMITING
     Route: 042
     Dates: start: 20121218, end: 20121219
  6. RANIDIL [Concomitant]
     Route: 042
     Dates: start: 20121218, end: 20121219
  7. SOLDESAM [Concomitant]
     Dates: start: 20121218, end: 20121219

REACTIONS (2)
  - Oedema peripheral [Unknown]
  - Pain in extremity [Unknown]
